FAERS Safety Report 20770155 (Version 1)
Quarter: 2022Q2

REPORT INFORMATION
  Report Type: Spontaneous
  Country: US (occurrence: US)
  Receive Date: 20220429
  Receipt Date: 20220429
  Transmission Date: 20220721
  Serious: No
  Sender: FDA-Public Use
  Company Number: US-BIOVITRUM-2022US05710

PATIENT
  Sex: Female
  Weight: 10 kg

DRUGS (7)
  1. SYNAGIS [Suspect]
     Active Substance: PALIVIZUMAB
     Indication: Premature baby
     Route: 030
  2. FAMOTIDINE 100% POWDER [Concomitant]
  3. PROAIR RESPICLICK 90 MCG AER POW BA [Concomitant]
  4. MIRALAX 17 G/DOSE POWDER [Concomitant]
  5. ALBUTEROL SULFATE [Concomitant]
     Active Substance: ALBUTEROL SULFATE
  6. KALYDECO [Concomitant]
     Active Substance: IVACAFTOR
  7. PULMOZYME 1MG/ML AMPUL [Concomitant]

REACTIONS (1)
  - Nasopharyngitis [Unknown]
